FAERS Safety Report 4509354-9 (Version None)
Quarter: 2004Q4

REPORT INFORMATION
  Report Type: 
  Country: None (occurrence: None)
  Receive Date: 20041123
  Receipt Date: 20041115
  Transmission Date: 20050328
  Serious: Yes (Other)
  Sender: FDA-Public Use
  Company Number: US-MERCK-0411USA02480

PATIENT
  Age: 48 Year
  Sex: Female

DRUGS (5)
  1. CANCIDAS [Suspect]
     Indication: FUNGAEMIA
     Route: 042
     Dates: start: 20040112, end: 20040117
  2. RIFAMPIN [Concomitant]
     Indication: TUBERCULOSIS
     Route: 048
     Dates: start: 20031001
  3. ETHAMBUTOL HYDROCHLORIDE [Concomitant]
     Route: 048
     Dates: start: 20031001
  4. PYRAZINAMIDE [Concomitant]
     Route: 048
     Dates: start: 20031001
  5. LEVOFLOXACIN [Concomitant]
     Route: 048
     Dates: start: 20031201

REACTIONS (3)
  - ERYTHEMA [None]
  - SKIN CANDIDA [None]
  - SKIN LESION [None]
